FAERS Safety Report 19132788 (Version 1)
Quarter: 2021Q2

REPORT INFORMATION
  Report Type: Spontaneous
  Country: US (occurrence: US)
  Receive Date: 20210413
  Receipt Date: 20210413
  Transmission Date: 20210717
  Serious: Yes (Other)
  Sender: FDA-Public Use
  Company Number: None

PATIENT
  Age: 67 Year
  Sex: Female

DRUGS (3)
  1. AMBRISENTAN [Suspect]
     Active Substance: AMBRISENTAN
     Indication: PULMONARY HYPERTENSION
  2. ALYQ 20 MG [Concomitant]
  3. UPTRAVI [Suspect]
     Active Substance: SELEXIPAG

REACTIONS (3)
  - Headache [None]
  - Multiple allergies [None]
  - Nasal congestion [None]

NARRATIVE: CASE EVENT DATE: 20210413
